FAERS Safety Report 6749483-2 (Version None)
Quarter: 2010Q2

REPORT INFORMATION
  Report Type: 
  Country: None (occurrence: None)
  Receive Date: 20100601
  Receipt Date: 20100526
  Transmission Date: 20101027
  Serious: Yes (Hospitalization, Other)
  Sender: FDA-Public Use
  Company Number: JP-BAYER-200914101BYL

PATIENT
  Age: 77 Year
  Sex: Female
  Weight: 48 kg

DRUGS (10)
  1. NEXAVAR [Suspect]
     Indication: RENAL CELL CARCINOMA
     Dosage: TOTAL DAILY DOSE: 800 MG  UNIT DOSE: 200 MG
     Route: 048
     Dates: start: 20090728, end: 20090902
  2. NEXAVAR [Suspect]
     Dosage: TOTAL DAILY DOSE: 400 MG  UNIT DOSE: 200 MG
     Route: 048
     Dates: start: 20090902, end: 20090930
  3. DEPAS [Concomitant]
     Route: 048
     Dates: start: 20090728, end: 20091125
  4. TAKEPRON [Concomitant]
     Route: 048
     Dates: start: 20090728, end: 20091125
  5. LIPITOR [Concomitant]
     Route: 048
     Dates: start: 20090728, end: 20091125
  6. JUVELA N [Concomitant]
     Route: 048
     Dates: start: 20090728, end: 20091125
  7. CEPHADOL [Concomitant]
     Route: 048
     Dates: start: 20090728, end: 20091125
  8. ADETPHOS [Concomitant]
     Dosage: UNIT DOSE: 10 %
     Route: 048
     Dates: start: 20090728, end: 20091125
  9. LAC-B [Concomitant]
     Route: 048
     Dates: start: 20090728, end: 20091125
  10. SENNOSIDE [Concomitant]
     Route: 048
     Dates: start: 20090806, end: 20091125

REACTIONS (11)
  - ANAEMIA [None]
  - BLOOD AMYLASE INCREASED [None]
  - C-REACTIVE PROTEIN INCREASED [None]
  - DECREASED APPETITE [None]
  - HYPOCALCAEMIA [None]
  - HYPOKALAEMIA [None]
  - LIPASE INCREASED [None]
  - MALAISE [None]
  - NAUSEA [None]
  - PALMAR-PLANTAR ERYTHRODYSAESTHESIA SYNDROME [None]
  - STOMATITIS [None]
